FAERS Safety Report 15448764 (Version 9)
Quarter: 2020Q2

REPORT INFORMATION
  Report Type: Spontaneous
  Country: US (occurrence: US)
  Receive Date: 20180929
  Receipt Date: 20200528
  Transmission Date: 20200713
  Serious: Yes (Other)
  Sender: FDA-Public Use
  Company Number: US-SA-2018SA270343

PATIENT
  Age: 45 Year
  Sex: Female

DRUGS (3)
  1. KEVZARA [Suspect]
     Active Substance: SARILUMAB
     Indication: RHEUMATOID ARTHRITIS
     Dosage: 200 MG, QOW
     Route: 058
     Dates: start: 201809
  2. KEVZARA [Suspect]
     Active Substance: SARILUMAB
     Dosage: 200 MG, QOW
     Route: 058
     Dates: start: 202004
  3. RASUVO [Concomitant]
     Active Substance: METHOTREXATE SODIUM
     Dosage: UNK

REACTIONS (11)
  - Injection site pruritus [Unknown]
  - Neoplasm malignant [Unknown]
  - Injection site irritation [Recovered/Resolved]
  - Fatigue [Recovered/Resolved]
  - Abdominal discomfort [Unknown]
  - Ear infection [Unknown]
  - Injection site erythema [Unknown]
  - Influenza [Unknown]
  - Sinusitis [Unknown]
  - Vomiting [Unknown]
  - Malaise [Unknown]

NARRATIVE: CASE EVENT DATE: 2018
